FAERS Safety Report 9686009 (Version 1)
Quarter: 2013Q4

REPORT INFORMATION
  Report Type: Spontaneous
  Country: US (occurrence: US)
  Receive Date: 20131113
  Receipt Date: 20131113
  Transmission Date: 20140711
  Serious: No
  Sender: FDA-Public Use
  Company Number: US-ALLERGAN-1303672US

PATIENT
  Age: 89 Year
  Sex: Female

DRUGS (4)
  1. COMBIGAN[R] [Suspect]
     Indication: GLAUCOMA
     Dosage: 1 GTT, BID
     Route: 047
     Dates: start: 201301
  2. REFRESH PRODUCT [Concomitant]
     Indication: EYE LUBRICATION THERAPY
     Dosage: UNK, PRN
     Route: 047
  3. NEXIUM                             /01479302/ [Concomitant]
     Indication: GASTROOESOPHAGEAL REFLUX DISEASE
     Dosage: UNK
  4. MIRALAX [Concomitant]
     Indication: CONSTIPATION
     Dosage: UNK

REACTIONS (3)
  - Dysuria [Recovered/Resolved]
  - Thirst [Unknown]
  - Vision blurred [Recovering/Resolving]
